FAERS Safety Report 8888336 (Version 2)
Quarter: 2013Q1

REPORT INFORMATION
  Report Type: Spontaneous
  Country: IT (occurrence: IT)
  Receive Date: 20121106
  Receipt Date: 20130215
  Transmission Date: 20140127
  Serious: Yes (Other)
  Sender: FDA-Public Use
  Company Number: IT-JNJFOC-20121017097

PATIENT
  Age: 43 Year
  Sex: Female
  Weight: 70 kg

DRUGS (5)
  1. HALDOL [Suspect]
     Indication: MENTAL DISORDER
     Route: 048
  2. HALDOL [Suspect]
     Indication: MENTAL DISORDER
     Route: 048
     Dates: start: 20121026, end: 20121026
  3. SEROQUEL [Suspect]
     Indication: SELF INJURIOUS BEHAVIOUR
     Route: 048
     Dates: start: 20121026, end: 20121026
  4. DEPAKIN [Suspect]
     Indication: SELF INJURIOUS BEHAVIOUR
     Route: 048
     Dates: start: 20121026, end: 20121026
  5. EN [Suspect]
     Indication: SELF INJURIOUS BEHAVIOUR
     Route: 048

REACTIONS (6)
  - Self injurious behaviour [Unknown]
  - Intentional overdose [Unknown]
  - Tachycardia [Unknown]
  - Sopor [Unknown]
  - Miosis [Unknown]
  - Coma [Unknown]
